FAERS Safety Report 26045437 (Version 1)
Quarter: 2025Q4

REPORT INFORMATION
  Report Type: Spontaneous
  Country: AU (occurrence: AU)
  Receive Date: 20251114
  Receipt Date: 20251114
  Transmission Date: 20260118
  Serious: Yes (Other)
  Sender: TAKEDA
  Company Number: AU-TAKEDA-2025TUS099361

PATIENT
  Age: 4 Decade
  Sex: Female

DRUGS (2)
  1. MESALAMINE [Suspect]
     Active Substance: MESALAMINE
     Indication: Proctitis ulcerative
     Dosage: 1 GRAM
  2. MESALAMINE [Suspect]
     Active Substance: MESALAMINE
     Indication: Proctitis ulcerative
     Dosage: 4.8 GRAM, QD
     Dates: start: 202103, end: 202305

REACTIONS (2)
  - Idiosyncratic drug reaction [Recovered/Resolved]
  - Neutropenia [Recovered/Resolved]
